FAERS Safety Report 8576369-3 (Version None)
Quarter: 2012Q3

REPORT INFORMATION
  Report Type: 
  Country: None (occurrence: None)
  Receive Date: 20120807
  Receipt Date: 20120802
  Transmission Date: 20120928
  Serious: Yes (Hospitalization)
  Sender: FDA-Public Use
  Company Number: US-ELI_LILLY_AND_COMPANY-US201208001126

PATIENT
  Sex: Female
  Weight: 82.993 kg

DRUGS (1)
  1. PRASUGREL HYDROCHLORIDE [Suspect]
     Dosage: UNK
     Dates: start: 20120607, end: 20120725

REACTIONS (2)
  - TRANSFUSION [None]
  - ULCER HAEMORRHAGE [None]
